FAERS Safety Report 5414468-5 (Version None)
Quarter: 2007Q3

REPORT INFORMATION
  Report Type: 
  Country: None (occurrence: None)
  Receive Date: 20070814
  Receipt Date: 20070809
  Transmission Date: 20080115
  Serious: Yes (Hospitalization)
  Sender: FDA-Public Use
  Company Number: GB-ABBOTT-07P-167-0377342-00

PATIENT
  Sex: Female
  Weight: 65 kg

DRUGS (10)
  1. HUMIRA [Suspect]
     Indication: RHEUMATOID ARTHRITIS
     Route: 058
     Dates: start: 20041025, end: 20061023
  2. SULFASALAZINE [Concomitant]
     Indication: DRUG USE FOR UNKNOWN INDICATION
  3. METHOTREXATE [Concomitant]
     Indication: DRUG USE FOR UNKNOWN INDICATION
  4. CALCIUM CARBONATE [Concomitant]
     Indication: DRUG USE FOR UNKNOWN INDICATION
  5. COD-LIVER OIL [Concomitant]
     Indication: DRUG USE FOR UNKNOWN INDICATION
  6. FOLIC ACID [Concomitant]
     Indication: DRUG USE FOR UNKNOWN INDICATION
  7. INDOMETHACIN [Concomitant]
     Indication: DRUG USE FOR UNKNOWN INDICATION
  8. NORETHINDRONE ACETATE [Concomitant]
     Indication: DRUG USE FOR UNKNOWN INDICATION
  9. FERROUS SULFATE [Concomitant]
     Indication: DRUG USE FOR UNKNOWN INDICATION
  10. VITAMIN B [Concomitant]
     Indication: DRUG USE FOR UNKNOWN INDICATION

REACTIONS (1)
  - PARAPARESIS [None]
